FAERS Safety Report 9515814 (Version 1)
Quarter: 2013Q1

REPORT INFORMATION
  Report Type: Spontaneous
  Country: US (occurrence: None)
  Receive Date: 20130305
  Receipt Date: 20130305
  Transmission Date: 20140127
  Serious: Yes (Other)
  Sender: FDA-Public Use
  Company Number: 163-21880-12102691

PATIENT
  Age: 81 Year
  Sex: Female

DRUGS (10)
  1. REVLIMID [Suspect]
     Indication: MANTLE CELL LYMPHOMA
     Dosage: 10 MG, 21 IN 21 D, PO
     Route: 048
     Dates: start: 20121001
  2. ACTONEL [Concomitant]
  3. AGGRENOX (ASASANTIN) (UNKNOWN) [Concomitant]
  4. BIOTIN (BIOTIN) (UNKNOWN) [Concomitant]
  5. CALCIUM 600 + D (LEKOVIT CA) (UNKNOWN) [Concomitant]
  6. CELEXA  (CITALOPRAM HYDROBROMIDE) (UNKNOWN) [Concomitant]
  7. CENTRUM SILVER (CENTRUM SILVER) (UNKNOWN) [Concomitant]
  8. CORGARD (NADOLOL) (UNKNOWN) [Concomitant]
  9. DITROPAN XL (OXYBUTYNIN HYDROCHLORIDE) (UNKNOWN) [Concomitant]
  10. CRANBERRY (VACCINIUM MACROCARPON JUICE) (UNKKNOWN) [Concomitant]

REACTIONS (4)
  - Dysphagia [None]
  - Constipation [None]
  - Decreased appetite [None]
  - Nausea [None]
